FAERS Safety Report 6361638-8 (Version None)
Quarter: 2009Q3

REPORT INFORMATION
  Report Type: 
  Country: None (occurrence: None)
  Receive Date: 20090915
  Receipt Date: 20090915
  Transmission Date: 20100115
  Serious: Yes (Hospitalization)
  Sender: FDA-Public Use
  Company Number: None

PATIENT
  Sex: Male
  Weight: 90.7194 kg

DRUGS (1)
  1. VIGAMOX [Suspect]
     Indication: CONJUNCTIVAL ABRASION
     Dosage: ONE DROP TID OPHTHALMIC
     Route: 047
     Dates: start: 20090823, end: 20090829

REACTIONS (1)
  - TENDON RUPTURE [None]
